FAERS Safety Report 18519439 (Version 1)
Quarter: 2020Q4

REPORT INFORMATION
  Report Type: Spontaneous
  Country: US (occurrence: US)
  Receive Date: 20201118
  Receipt Date: 20201118
  Transmission Date: 20210114
  Serious: Yes (Death, Other)
  Sender: FDA-Public Use
  Company Number: US-GILEAD-2020-0504743

PATIENT
  Age: 70 Year
  Sex: Male
  Weight: 49.4 kg

DRUGS (1)
  1. YESCARTA [Suspect]
     Active Substance: AXICABTAGENE CILOLEUCEL
     Indication: DIFFUSE LARGE B-CELL LYMPHOMA RECURRENT
     Dosage: MAX (2 X 10^8), SINGLE
     Route: 042
     Dates: start: 20200921, end: 20200921

REACTIONS (10)
  - Speech disorder [Unknown]
  - Confusional state [Unknown]
  - Delirium [Unknown]
  - Disturbance in attention [Unknown]
  - Agitation [Unknown]
  - Shock haemorrhagic [Fatal]
  - Neurotoxicity [Unknown]
  - Cytokine release syndrome [Unknown]
  - Gastrointestinal haemorrhage [Not Recovered/Not Resolved]
  - Diffuse large B-cell lymphoma [Fatal]

NARRATIVE: CASE EVENT DATE: 20200921
